FAERS Safety Report 7978577-9 (Version None)
Quarter: 2011Q4

REPORT INFORMATION
  Report Type: 
  Country: None (occurrence: None)
  Receive Date: 20111214
  Receipt Date: 20111212
  Transmission Date: 20120403
  Serious: Yes (Life-Threatening, Hospitalization)
  Sender: FDA-Public Use
  Company Number: US-B.I. PHARMACEUTICALS,INC./RIDGEFIELD-2011-BP-26850BP

PATIENT
  Sex: Female

DRUGS (17)
  1. WATER PILLS [Concomitant]
  2. THYROID TAB [Concomitant]
  3. FISH OIL [Concomitant]
  4. NUERONTIN [Concomitant]
  5. SPIRIVA [Suspect]
     Indication: BRONCHITIS CHRONIC
     Dosage: 18 MCG
     Route: 048
     Dates: start: 20111126, end: 20111126
  6. COZAAR [Concomitant]
     Indication: HYPERTENSION
     Dosage: 100 MG
     Route: 048
  7. SYMBICORT [Concomitant]
  8. COVASTATIN [Concomitant]
  9. CALCIUM [Concomitant]
  10. SPIRIVA [Suspect]
     Indication: ASTHMA
     Dosage: 18 MCG
     Route: 055
     Dates: start: 20101126
  11. POTASSIUM CHLORIDE [Concomitant]
  12. MULTI-VITAMIN [Concomitant]
  13. FOSAMAX [Concomitant]
  14. SPIRIVA [Suspect]
     Indication: CHRONIC OBSTRUCTIVE PULMONARY DISEASE
     Dosage: 18 MCG
     Route: 055
     Dates: start: 20060101
  15. SPIRIVA [Suspect]
     Indication: LUNG DISORDER
  16. ALBUTEROL INHALER [Concomitant]
     Indication: INHALATION THERAPY
     Route: 055
  17. PRILOSEC [Concomitant]

REACTIONS (6)
  - LUNG INFECTION [None]
  - INCORRECT ROUTE OF DRUG ADMINISTRATION [None]
  - UPPER RESPIRATORY TRACT INFECTION [None]
  - APLASIA PURE RED CELL [None]
  - ANAEMIA [None]
  - DRUG INEFFECTIVE [None]
